FAERS Safety Report 9262546 (Version 1)
Quarter: 2013Q2

REPORT INFORMATION
  Report Type: Spontaneous
  Country: US (occurrence: None)
  Receive Date: 20130425
  Receipt Date: 20130425
  Transmission Date: 20140414
  Serious: No
  Sender: FDA-Public Use
  Company Number: US-LHC-2013019

PATIENT
  Age: 72 Year
  Sex: Female

DRUGS (2)
  1. CARBON DIOXIDE [Suspect]
     Indication: PNEUMOPERITONEUM
  2. ISOFLURANE [Concomitant]

REACTIONS (2)
  - Small intestine gangrene [None]
  - Post procedural complication [None]
